FAERS Safety Report 10570188 (Version 3)
Quarter: 2016Q4

REPORT INFORMATION
  Report Type: Spontaneous
  Country: US (occurrence: US)
  Receive Date: 20141107
  Receipt Date: 20161229
  Transmission Date: 20170206
  Serious: Yes (Other)
  Sender: FDA-Public Use
  Company Number: US-JNJCP-30000249564

PATIENT
  Age: 43 Year
  Sex: Female
  Weight: 83 kg

DRUGS (2)
  1. SHOWER TO SHOWER TALCUM PRODUCT [Suspect]
     Active Substance: TALC
     Route: 061
     Dates: start: 198706, end: 201403
  2. JOHNSONS BABY POWDER [Suspect]
     Active Substance: TALC
     Route: 061
     Dates: start: 198706, end: 201403

REACTIONS (1)
  - Ovarian cancer [Unknown]

NARRATIVE: CASE EVENT DATE: 20120626
